FAERS Safety Report 19653086 (Version 1)
Quarter: 2021Q3

REPORT INFORMATION
  Report Type: Spontaneous
  Country: US (occurrence: US)
  Receive Date: 20210803
  Receipt Date: 20210803
  Transmission Date: 20211014
  Serious: Yes (Other)
  Sender: FDA-Public Use
  Company Number: US-PFIZER INC-202100932899

PATIENT
  Age: 87 Year
  Sex: Female

DRUGS (1)
  1. XELJANZ [Suspect]
     Active Substance: TOFACITINIB CITRATE
     Dosage: 5 MG

REACTIONS (7)
  - Diarrhoea haemorrhagic [Unknown]
  - Diarrhoea [Unknown]
  - Condition aggravated [Unknown]
  - Haematochezia [Unknown]
  - Malaise [Unknown]
  - Defaecation urgency [Unknown]
  - Asthenia [Unknown]
